FAERS Safety Report 6401927-1 (Version None)
Quarter: 2009Q4

REPORT INFORMATION
  Report Type: 
  Country: None (occurrence: None)
  Receive Date: 20091015
  Receipt Date: 20091013
  Transmission Date: 20100525
  Serious: Yes (Death, Hospitalization)
  Sender: FDA-Public Use
  Company Number: A0798980A

PATIENT
  Age: 74 Year
  Sex: Male

DRUGS (9)
  1. AVANDIA [Suspect]
     Dosage: 4MG SEE DOSAGE TEXT
     Route: 048
     Dates: start: 20040629, end: 20060202
  2. GLYBURIDE [Concomitant]
  3. RANITIDINE [Concomitant]
  4. CELEBREX [Concomitant]
  5. DIGOXIN [Concomitant]
  6. PROBENECID [Concomitant]
  7. CLARITIN [Concomitant]
  8. FLUOXETINE [Concomitant]
  9. K DUR [Concomitant]

REACTIONS (4)
  - CARDIAC FAILURE CONGESTIVE [None]
  - CONGESTIVE CARDIOMYOPATHY [None]
  - RENAL FAILURE ACUTE [None]
  - VENTRICULAR TACHYCARDIA [None]
